FAERS Safety Report 9796691 (Version 2)
Quarter: 2014Q1

REPORT INFORMATION
  Report Type: Spontaneous
  Country: US (occurrence: US)
  Receive Date: 20140103
  Receipt Date: 20140310
  Transmission Date: 20141002
  Serious: Yes (Congenital Anomaly, Other)
  Sender: FDA-Public Use
  Company Number: PHHY2013US152722

PATIENT
  Age: 1 Month
  Sex: 0

DRUGS (4)
  1. MYCOPHENOLATE MOFETIL [Suspect]
  2. TACROLIMUS [Suspect]
  3. PREDNISONE [Suspect]
  4. AMPHOTERICIN B [Suspect]
     Indication: HISTOPLASMOSIS

REACTIONS (8)
  - Nasal septum deviation [Recovered/Resolved]
  - Cartilage development disorder [Recovered/Resolved]
  - Ventricular septal defect [Recovered/Resolved]
  - Congenital musculoskeletal anomaly [Unknown]
  - Gastrointestinal disorder [Unknown]
  - Cyst [Unknown]
  - Neonatal respiratory distress syndrome [Recovered/Resolved]
  - Foetal exposure during pregnancy [Unknown]
